FAERS Safety Report 4577180-0 (Version None)
Quarter: 2005Q1

REPORT INFORMATION
  Report Type: 
  Country: None (occurrence: None)
  Receive Date: 20050210
  Receipt Date: 20050131
  Transmission Date: 20050727
  Serious: Yes (Other)
  Sender: FDA-Public Use
  Company Number: JP-BRISTOL-MYERS SQUIBB COMPANY-12852166

PATIENT
  Age: 57 Year
  Sex: Male
  Weight: 43 kg

DRUGS (6)
  1. UFT [Suspect]
     Indication: TONGUE NEOPLASM MALIGNANT STAGE UNSPECIFIED
     Dosage: -GRANULES (450 MG)
     Route: 048
     Dates: start: 20040909, end: 20040913
  2. CISPLATIN [Suspect]
     Indication: TONGUE NEOPLASM MALIGNANT STAGE UNSPECIFIED
     Route: 042
     Dates: start: 20040705, end: 20040705
  3. BLEOMYCIN [Suspect]
     Indication: TONGUE NEOPLASM MALIGNANT STAGE UNSPECIFIED
     Dates: start: 20040401, end: 20040423
  4. CARBOPLATIN [Suspect]
     Indication: TONGUE NEOPLASM MALIGNANT STAGE UNSPECIFIED
     Route: 042
     Dates: start: 20040506, end: 20040506
  5. TS-1 [Suspect]
     Indication: TONGUE NEOPLASM MALIGNANT STAGE UNSPECIFIED
     Route: 048
     Dates: start: 20041005, end: 20041007
  6. RADIATION THERAPY [Concomitant]
     Dosage: DOSE= GY
     Dates: start: 20040930, end: 20041018

REACTIONS (2)
  - INTERSTITIAL LUNG DISEASE [None]
  - LEUKOPENIA [None]
